FAERS Safety Report 20889168 (Version 1)
Quarter: 2022Q2

REPORT INFORMATION
  Report Type: Spontaneous
  Country: US (occurrence: US)
  Receive Date: 20220530
  Receipt Date: 20220530
  Transmission Date: 20220721
  Serious: No
  Sender: FDA-Public Use
  Company Number: US-drreddys-SPO/USA/22/0150182

PATIENT
  Age: 49 Year
  Sex: Female

DRUGS (1)
  1. ZENATANE [Suspect]
     Active Substance: ISOTRETINOIN
     Indication: Acne cystic
     Dosage: RMA ISSUE DATE: 11 JANUARY 2022 11:46:48 AM; 10 FEBRUARY 2022 11:24:16 AM; 11 MARCH 2022 08:12:34 AM

REACTIONS (3)
  - Dry skin [Unknown]
  - Myalgia [Unknown]
  - Product use in unapproved indication [Unknown]
